FAERS Safety Report 5603200-8 (Version None)
Quarter: 2008Q1

REPORT INFORMATION
  Report Type: 
  Country: None (occurrence: None)
  Receive Date: 20080125
  Receipt Date: 20080118
  Transmission Date: 20080703
  Serious: Yes (Life-Threatening, Hospitalization, Other)
  Sender: FDA-Public Use
  Company Number: JP-PFIZER INC-2007108348

PATIENT
  Sex: Female
  Weight: 69 kg

DRUGS (15)
  1. ZOLOFT [Suspect]
     Indication: DEPRESSION
     Route: 048
     Dates: start: 20071116, end: 20071226
  2. ABILIFY [Suspect]
     Indication: DEPRESSION
     Dosage: DAILY DOSE:6MG
     Route: 048
     Dates: start: 20071124, end: 20071226
  3. SEDIEL [Suspect]
     Indication: DEPRESSION
     Dosage: DAILY DOSE:30MG
     Route: 048
     Dates: start: 20071225, end: 20071226
  4. RESLIN [Concomitant]
     Indication: INSOMNIA
     Route: 048
  5. EURODIN [Concomitant]
     Indication: INSOMNIA
     Route: 048
  6. TICLOPIDINE HCL [Concomitant]
     Route: 048
  7. ASPIRIN [Concomitant]
     Route: 048
  8. LASIX [Concomitant]
     Indication: HYPERTENSION
     Route: 048
  9. SPIRONOLACTONE [Concomitant]
     Indication: HYPERTENSION
     Route: 048
  10. ADALAT [Concomitant]
     Indication: HYPERTENSION
     Route: 048
  11. VALSARTAN [Concomitant]
     Indication: HYPERTENSION
     Route: 048
  12. TRICHLORMETHIAZIDE [Concomitant]
     Indication: HYPERTENSION
     Route: 048
  13. CARDENALIN [Concomitant]
     Indication: HYPERTENSION
     Route: 048
  14. MAGNESIUM OXIDE [Concomitant]
     Indication: CONSTIPATION
     Route: 048
  15. GLYSENNID [Concomitant]
     Indication: CONSTIPATION
     Route: 048

REACTIONS (2)
  - DEPRESSION [None]
  - RHABDOMYOLYSIS [None]
